FAERS Safety Report 11103000 (Version 1)
Quarter: 2015Q2

REPORT INFORMATION
  Report Type: Spontaneous
  Country: US (occurrence: US)
  Receive Date: 20150511
  Receipt Date: 20150511
  Transmission Date: 20150821
  Serious: Yes (Other)
  Sender: FDA-Public Use
  Company Number: US-PFIZER INC-2015147051

PATIENT
  Sex: Female
  Weight: 77 kg

DRUGS (2)
  1. LEVEMIR [Concomitant]
     Active Substance: INSULIN DETEMIR
     Indication: DIABETES MELLITUS
     Dosage: 8 IU, 1X/DAY (AT NIGHT)
  2. DISOPYRAMIDE PHOSPHATE. [Suspect]
     Active Substance: DISOPYRAMIDE PHOSPHATE
     Indication: HEART RATE ABNORMAL
     Dosage: UNK

REACTIONS (3)
  - Arrhythmia [Unknown]
  - Asthenia [Unknown]
  - Loss of consciousness [Unknown]
